FAERS Safety Report 21925612 (Version 1)
Quarter: 2023Q1

REPORT INFORMATION
  Report Type: Spontaneous
  Country: US (occurrence: US)
  Receive Date: 20230130
  Receipt Date: 20230130
  Transmission Date: 20230417
  Serious: Yes (Death, Hospitalization)
  Sender: FDA-Public Use
  Company Number: US-MYLANLABS-2023M1009778

PATIENT
  Age: 60 Year
  Sex: Male

DRUGS (18)
  1. BORTEZOMIB [Suspect]
     Active Substance: BORTEZOMIB
     Indication: Hyperammonaemic encephalopathy
     Dosage: 1.5 MILLIGRAM/SQ. METER, CYCLE, CYCLICAL BORTEZOMIB ONCE WEEKLY
     Route: 042
  2. BORTEZOMIB [Suspect]
     Active Substance: BORTEZOMIB
     Indication: Plasma cell myeloma
  3. DEXAMETHASONE [Suspect]
     Active Substance: DEXAMETHASONE
     Indication: Hyperammonaemic encephalopathy
     Dosage: 40 MILLIGRAM, CYCLE, CYCLICAL BORTEZOMIB ONCE WEEKLY
     Route: 042
  4. DEXAMETHASONE [Suspect]
     Active Substance: DEXAMETHASONE
     Indication: Plasma cell myeloma
     Dosage: 40 MILLIGRAM, CYCLE, ONE CYCLE OF IV BOLUS OF DEXAMETHASONE 40 MG DAILY
     Route: 042
  5. ETOPOSIDE [Suspect]
     Active Substance: ETOPOSIDE
     Indication: Hyperammonaemic encephalopathy
     Dosage: 40 MILLIGRAM/SQ. METER, CYCLE (ONE CYCLE OF CONTINUOUS IV INFUSION OF ETOPOSIDE 40 MG/M2 /DAY FROM T
     Route: 042
  6. ETOPOSIDE [Suspect]
     Active Substance: ETOPOSIDE
     Indication: Plasma cell myeloma
  7. CISPLATIN [Suspect]
     Active Substance: CISPLATIN
     Indication: Hyperammonaemic encephalopathy
     Dosage: 10 MILLIGRAM/SQ. METER, CYCLE (ONE CYCLE OF CONTINUOUS IV INFUSION OF CISPLATIN 10 MG/M2 /DAY FROM T
     Route: 042
  8. CISPLATIN [Suspect]
     Active Substance: CISPLATIN
     Indication: Plasma cell myeloma
  9. RIFAXIMIN [Suspect]
     Active Substance: RIFAXIMIN
     Indication: Hyperammonaemic encephalopathy
     Dosage: UNK (AS A PART OF DCEP REGIMEN)
     Route: 065
  10. RIFAXIMIN [Suspect]
     Active Substance: RIFAXIMIN
     Indication: Plasma cell myeloma
  11. LACTULOSE [Suspect]
     Active Substance: LACTULOSE
     Indication: Hyperammonaemic encephalopathy
     Dosage: UNK
     Route: 065
  12. LACTULOSE [Suspect]
     Active Substance: LACTULOSE
     Indication: Plasma cell myeloma
  13. DARATUMUMAB [Suspect]
     Active Substance: DARATUMUMAB
     Indication: Hyperammonaemic encephalopathy
     Dosage: 1800 MILLIGRAM, CYCLE
     Route: 058
  14. DARATUMUMAB [Suspect]
     Active Substance: DARATUMUMAB
     Indication: Plasma cell myeloma
  15. CYCLOPHOSPHAMIDE [Suspect]
     Active Substance: CYCLOPHOSPHAMIDE
     Indication: Hyperammonaemic encephalopathy
     Dosage: 225 MILLIGRAM/SQ. METER, CYCLE (CYCLICAL CYCLOPHOSPHAMIDE ONCE WEEKLY, AS A PART OF DCEP REGIMEN)
     Route: 042
  16. CYCLOPHOSPHAMIDE [Suspect]
     Active Substance: CYCLOPHOSPHAMIDE
     Indication: Plasma cell myeloma
     Dosage: 400 MILLIGRAM/SQ. METER, CONTINUOUS IV INFUSIONS OF CYCLOPHOSPHAMIDE 400 MG/M 2 /DAY
     Route: 042
  17. VENETOCLAX [Suspect]
     Active Substance: VENETOCLAX
     Indication: Hyperammonaemic encephalopathy
     Dosage: 200 MILLIGRAM, QD
     Route: 065
  18. VENETOCLAX [Suspect]
     Active Substance: VENETOCLAX
     Indication: Plasma cell myeloma
     Dosage: 400 MILLIGRAM, QD
     Route: 065

REACTIONS (1)
  - Drug ineffective [Fatal]
